FAERS Safety Report 19661986 (Version 3)
Quarter: 2021Q4

REPORT INFORMATION
  Report Type: Other
  Country: CO (occurrence: CO)
  Receive Date: 20210805
  Receipt Date: 20211001
  Transmission Date: 20220304
  Serious: Yes (Hospitalization)
  Sender: FDA-Public Use
  Company Number: CO-002147023-NVSC2021CO173855

PATIENT
  Age: 37 Year
  Sex: Female

DRUGS (2)
  1. OMALIZUMAB [Suspect]
     Active Substance: OMALIZUMAB
     Indication: Product used for unknown indication
     Route: 065
  2. OMALIZUMAB [Suspect]
     Active Substance: OMALIZUMAB
     Route: 058

REACTIONS (6)
  - Dyspnoea [Unknown]
  - SARS-CoV-2 test positive [Recovering/Resolving]
  - Laboratory test abnormal [Unknown]
  - Product dose omission issue [Unknown]
  - Inappropriate schedule of product administration [Unknown]
  - Product availability issue [Unknown]
